FAERS Safety Report 4846506-2 (Version None)
Quarter: 2005Q4

REPORT INFORMATION
  Report Type: 
  Country: None (occurrence: None)
  Receive Date: 20051202
  Receipt Date: 20051129
  Transmission Date: 20060501
  Serious: Yes (Death)
  Sender: FDA-Public Use
  Company Number: 163-20785-05110111

PATIENT
  Age: 76 Year
  Sex: Male

DRUGS (12)
  1. THALOMID [Suspect]
     Indication: MULTIPLE MYELOMA
     Dosage: 100 MG, DAILY, ORAL
     Route: 048
     Dates: start: 20050628, end: 20051105
  2. VELCADE [Suspect]
     Indication: MULTIPLE MYELOMA
     Dosage: 2.6 MG, Q 3 WEEKS, INTRAVENOUS PUSH
     Route: 042
  3. DECADRON [Suspect]
     Indication: MULTIPLE MYELOMA
     Dosage: 20 MG, Q 3 WEEKS, INTRAVENOUS
     Route: 042
  4. ANZEMET [Suspect]
     Indication: MULTIPLE MYELOMA
     Dosage: 100 MG, Q 3 WEEKS,  INTRAVENOUS
  5. FLOMAX [Concomitant]
  6. ALLOPURINOL [Concomitant]
  7. LORTAB [Concomitant]
  8. PREVACID [Concomitant]
  9. RISPERDAL [Concomitant]
  10. MAGOXIDE (MAGNESIUM OXIDE) [Concomitant]
  11. COGENTIN [Concomitant]
  12. LANTUS [Concomitant]

REACTIONS (3)
  - MALIGNANT NEOPLASM PROGRESSION [None]
  - MULTIPLE MYELOMA [None]
  - SEPSIS [None]
